FAERS Safety Report 13318062 (Version 2)
Quarter: 2017Q1

REPORT INFORMATION
  Report Type: Report from Study
  Country: US (occurrence: US)
  Receive Date: 20170310
  Receipt Date: 20170331
  Transmission Date: 20170428
  Serious: Yes (Hospitalization, Other)
  Sender: FDA-Public Use
  Company Number: US-GILEAD-2017-0261561

PATIENT
  Age: 67 Year
  Sex: Male

DRUGS (4)
  1. VELETRI [Concomitant]
     Active Substance: EPOPROSTENOL
  2. NIFEDIPINE. [Concomitant]
     Active Substance: NIFEDIPINE
  3. AMBRISENTAN [Suspect]
     Active Substance: AMBRISENTAN
     Indication: PRODUCT USED FOR UNKNOWN INDICATION
     Dosage: 5 MG, QD
     Route: 065
  4. ADCIRCA [Concomitant]
     Active Substance: TADALAFIL

REACTIONS (3)
  - Atrial flutter [Unknown]
  - Pulmonary hypertension [Unknown]
  - Renal failure [Unknown]
